FAERS Safety Report 5478994-5 (Version None)
Quarter: 2007Q4

REPORT INFORMATION
  Report Type: 
  Country: None (occurrence: None)
  Receive Date: 20071006
  Receipt Date: 20070925
  Transmission Date: 20080405
  Serious: Yes (Other)
  Sender: FDA-Public Use
  Company Number: US-PFIZER INC-2007080817

PATIENT
  Sex: Female
  Weight: 59.9 kg

DRUGS (5)
  1. LYRICA [Suspect]
     Indication: NEUROPATHY PERIPHERAL
  2. TEMAZEPAM [Concomitant]
  3. ATENOLOL [Concomitant]
  4. ATACAND HCT [Concomitant]
  5. RELAFEN [Concomitant]

REACTIONS (6)
  - BODY HEIGHT DECREASED [None]
  - DRUG INEFFECTIVE [None]
  - DRY EYE [None]
  - MACULAR DEGENERATION [None]
  - POSTERIOR CAPSULE OPACIFICATION [None]
  - SOMNOLENCE [None]
